FAERS Safety Report 10155255 (Version 2)
Quarter: 2014Q2

REPORT INFORMATION
  Report Type: Spontaneous
  Country: US (occurrence: US)
  Receive Date: 20140506
  Receipt Date: 20140506
  Transmission Date: 20141212
  Serious: No
  Sender: FDA-Public Use
  Company Number: US-TEVA-401548USA

PATIENT
  Age: 47 Year
  Sex: Female

DRUGS (3)
  1. CLARAVIS [Suspect]
     Dates: start: 20120921
  2. NORVASC [Concomitant]
  3. DIOVAN [Concomitant]

REACTIONS (2)
  - Transaminases increased [Recovering/Resolving]
  - Hepatic enzyme increased [Unknown]
